FAERS Safety Report 13709976 (Version 4)
Quarter: 2017Q3

REPORT INFORMATION
  Report Type: Spontaneous
  Country: CA (occurrence: CA)
  Receive Date: 20170703
  Receipt Date: 20170802
  Transmission Date: 20171127
  Serious: Yes (Hospitalization, Other)
  Sender: FDA-Public Use
  Company Number: CA-SUN PHARMACEUTICAL INDUSTRIES LTD-2017US-144337

PATIENT
  Age: 70 Year
  Sex: Male

DRUGS (2)
  1. RAN-EZETIMIBE [Suspect]
     Active Substance: EZETIMIBE
     Indication: PRODUCT USED FOR UNKNOWN INDICATION
     Dosage: 1 DF, QD
     Route: 065
     Dates: start: 20170514, end: 201705
  2. RAN-ATORVASTATIN [Concomitant]
     Active Substance: ATORVASTATIN
     Indication: PRODUCT USED FOR UNKNOWN INDICATION
     Dosage: UNK
     Route: 065

REACTIONS (11)
  - Nephrolithiasis [Unknown]
  - Blood alkaline phosphatase increased [Unknown]
  - Calculus urinary [Unknown]
  - Urinary tract infection [Unknown]
  - Gait disturbance [Unknown]
  - Renal pain [Unknown]
  - Kidney fibrosis [Unknown]
  - Chromaturia [Unknown]
  - Renal cancer [Unknown]
  - Urine abnormality [Unknown]
  - Haematuria [Unknown]

NARRATIVE: CASE EVENT DATE: 201705
